FAERS Safety Report 21076594 (Version 2)
Quarter: 2022Q3

REPORT INFORMATION
  Report Type: Spontaneous
  Country: US (occurrence: US)
  Receive Date: 20220713
  Receipt Date: 20220902
  Transmission Date: 20221027
  Serious: Yes (Other)
  Sender: FDA-Public Use
  Company Number: US-PFIZER INC-202200949708

PATIENT
  Age: 90 Year
  Sex: Male

DRUGS (3)
  1. PAXLOVID [Suspect]
     Active Substance: NIRMATRELVIR\RITONAVIR
     Indication: COVID-19 treatment
     Dosage: 2X/DAY (2 TABLETS TAKEN TWICE DAILY)
     Dates: start: 20220705, end: 20220710
  2. AMLODIPINE [Concomitant]
     Active Substance: AMLODIPINE BESYLATE
     Indication: Hypertension
     Dosage: 5 MG, DAILY
     Dates: start: 2021
  3. LATANOPROST [Concomitant]
     Active Substance: LATANOPROST
     Indication: Eye disorder
     Dosage: JUST BEFORE BED, OTHERWISE UNKNOWN
     Dates: start: 2021

REACTIONS (9)
  - Loss of consciousness [Unknown]
  - Asthenia [Recovering/Resolving]
  - Fatigue [Recovering/Resolving]
  - Hypotension [Unknown]
  - Limb discomfort [Unknown]
  - Movement disorder [Unknown]
  - Pain [Recovering/Resolving]
  - Pruritus [Unknown]
  - Dysgeusia [Recovering/Resolving]

NARRATIVE: CASE EVENT DATE: 20220711
